FAERS Safety Report 5404681-5 (Version None)
Quarter: 2007Q3

REPORT INFORMATION
  Report Type: 
  Country: None (occurrence: None)
  Receive Date: 20070731
  Receipt Date: 20070716
  Transmission Date: 20080115
  Serious: Yes (Other)
  Sender: FDA-Public Use
  Company Number: E2090-00262-SPO-DE

PATIENT
  Age: 14 Year
  Sex: Female
  Weight: 32 kg

DRUGS (10)
  1. ZONEGRAN [Suspect]
     Indication: EPILEPSY
     Dosage: 200 MG, 1 IN 1 D, ORAL
     Route: 048
     Dates: start: 20030101
  2. ERGENYL LIQUID (NATRIUMVALPROAT) (VALPROATE SODIUM) [Concomitant]
  3. EFALEX (OMEGA 3, 6 FATTY ACID)(EFALEX) [Concomitant]
  4. NEUROCIL (LEVOMEPROMAZIN) (LEVOMEPROMAZINE MALEATE) [Concomitant]
  5. JODID (KALIUMIODID) (POTASSIUM IODIDE) [Concomitant]
  6. BIOCARN SOLUTION (CARNITINE) [Concomitant]
  7. RANITIDIN (RANITIDINE) [Concomitant]
  8. LAMOTRIGIN (LAMOTRIGINE) [Concomitant]
  9. CHLORALHYDRAT (CHLORAL HYDRATE) [Concomitant]
  10. DIAZEPAM [Concomitant]

REACTIONS (1)
  - NEPHROLITHIASIS [None]
